FAERS Safety Report 4728642-4 (Version None)
Quarter: 2005Q3

REPORT INFORMATION
  Report Type: 
  Country: None (occurrence: None)
  Receive Date: 20050727
  Receipt Date: 20050720
  Transmission Date: 20060218
  Serious: Yes (Life-Threatening, Hospitalization)
  Sender: FDA-Public Use
  Company Number: 232844K05USA

PATIENT
  Age: 59 Year
  Sex: Female
  Weight: 91.173 kg

DRUGS (4)
  1. REBIF [Suspect]
     Indication: MULTIPLE SCLEROSIS
     Dosage: 44 MCG, 3 IN 1 WEEKS, SUBCUTANEOUS
     Route: 058
     Dates: start: 20030611
  2. ENAPRIL [Concomitant]
  3. HYDROCHLOROTHIAZIDE [Concomitant]
  4. PAXIL [Concomitant]

REACTIONS (3)
  - ANGINA UNSTABLE [None]
  - INJECTION SITE HAEMORRHAGE [None]
  - WEIGHT INCREASED [None]
